FAERS Safety Report 5132949-9 (Version None)
Quarter: 2006Q4

REPORT INFORMATION
  Report Type: 
  Country: None (occurrence: None)
  Receive Date: 20061019
  Receipt Date: 20061019
  Transmission Date: 20070319
  Serious: Yes (Hospitalization)
  Sender: FDA-Public Use
  Company Number: None

PATIENT
  Age: 75 Year
  Sex: Male
  Weight: 103.2 kg

DRUGS (9)
  1. DOXYCYCLINE [Suspect]
  2. DILTIAZEM (INWOOD) [Concomitant]
  3. FORMOTEROL FUMARATE [Concomitant]
  4. TAMSULOSIN HCL [Concomitant]
  5. ALBUTEROL [Concomitant]
  6. DEXAMETHASONE [Concomitant]
  7. DIPHENHYDRAMINE HCL [Concomitant]
  8. LORATADINE [Concomitant]
  9. IPRATROPIUM BROMIDE [Concomitant]

REACTIONS (1)
  - RASH [None]
